FAERS Safety Report 20555418 (Version 3)
Quarter: 2022Q2

REPORT INFORMATION
  Report Type: Report from Study
  Country: US (occurrence: US)
  Receive Date: 20220304
  Receipt Date: 20220420
  Transmission Date: 20220721
  Serious: Yes (Hospitalization, Other)
  Sender: FDA-Public Use
  Company Number: US-BRISTOL-MYERS SQUIBB COMPANY-BMS-2022-029879

PATIENT
  Age: 59 Year
  Sex: Male
  Weight: 101.9 kg

DRUGS (5)
  1. NIVOLUMAB [Suspect]
     Active Substance: NIVOLUMAB
     Indication: Oesophageal adenocarcinoma
     Dosage: 480 MILLIGRAM
     Route: 042
     Dates: start: 20211012, end: 20211026
  2. NIVOLUMAB [Suspect]
     Active Substance: NIVOLUMAB
  3. CARBOPLATIN [Suspect]
     Active Substance: CARBOPLATIN
     Indication: Oesophageal adenocarcinoma
     Dosage: 1213 MILLIGRAM
     Route: 042
     Dates: start: 20211012, end: 20211118
  4. PACLITAXEL [Suspect]
     Active Substance: PACLITAXEL
     Indication: Oesophageal adenocarcinoma
     Dosage: 570 MILLIGRAM
     Route: 042
     Dates: start: 20211012, end: 20211118
  5. AMPICILLIN SODIUM\SULBACTAM SODIUM [Suspect]
     Active Substance: AMPICILLIN SODIUM\SULBACTAM SODIUM
     Indication: Product used for unknown indication
     Route: 065

REACTIONS (15)
  - Lymphocyte count decreased [Recovering/Resolving]
  - White blood cell count decreased [Recovered/Resolved with Sequelae]
  - Anaemia [Recovering/Resolving]
  - COVID-19 pneumonia [Recovered/Resolved with Sequelae]
  - Pulmonary embolism [Recovered/Resolved with Sequelae]
  - Bacterial infection [Unknown]
  - Wound infection [Recovered/Resolved with Sequelae]
  - Gastrointestinal anastomotic leak [Recovered/Resolved with Sequelae]
  - Seroma [Unknown]
  - Corynebacterium infection [Unknown]
  - Haemoptysis [Recovered/Resolved with Sequelae]
  - Atrial fibrillation [Unknown]
  - Sepsis [Unknown]
  - Haematemesis [Unknown]
  - Pneumothorax [Unknown]

NARRATIVE: CASE EVENT DATE: 20211019
